FAERS Safety Report 10785248 (Version 1)
Quarter: 2015Q1

REPORT INFORMATION
  Report Type: Spontaneous
  Country: US (occurrence: None)
  Receive Date: 20150209
  Receipt Date: 20150209
  Transmission Date: 20150721
  Serious: Yes (Other)
  Sender: FDA-Public Use
  Company Number: 2702349

PATIENT
  Age: 83 Year
  Sex: Male
  Weight: 94.6 kg

DRUGS (2)
  1. STERILE WATER FOR INJECTION [Suspect]
     Active Substance: WATER
     Indication: MEDICATION DILUTION
     Route: 042
  2. VANCOMYCIN HYDROCHLORIDE. [Suspect]
     Active Substance: VANCOMYCIN HYDROCHLORIDE
     Indication: BACTERAEMIA
     Route: 042
     Dates: start: 20141108, end: 20141108

REACTIONS (5)
  - Blood creatinine increased [None]
  - Nephropathy toxic [None]
  - Product colour issue [None]
  - Poor quality drug administered [None]
  - Product contamination [None]
